FAERS Safety Report 21051128 (Version 1)
Quarter: 2022Q3

REPORT INFORMATION
  Report Type: Report from Study
  Country: US (occurrence: US)
  Receive Date: 20220707
  Receipt Date: 20220707
  Transmission Date: 20221027
  Serious: No
  Sender: FDA-Public Use
  Company Number: US-Ipsen Biopharmaceuticals, Inc.-2022-15362

PATIENT
  Age: 60 Year
  Sex: Female

DRUGS (1)
  1. SOMATULINE DEPOT [Suspect]
     Active Substance: LANREOTIDE ACETATE
     Indication: Acromegaly
     Dosage: STRENGTH: 120 MG/0.5 ML, EVENRY 4 WEEKS
     Route: 058
     Dates: start: 20220426

REACTIONS (7)
  - Injection site nodule [Recovered/Resolved]
  - Nausea [Recovering/Resolving]
  - Injection site pain [Recovering/Resolving]
  - Confusional state [Recovering/Resolving]
  - Sciatica [Recovering/Resolving]
  - COVID-19 [Recovering/Resolving]
  - Off label use [Unknown]

NARRATIVE: CASE EVENT DATE: 20220101
